FAERS Safety Report 6719223-1 (Version None)
Quarter: 2010Q2

REPORT INFORMATION
  Report Type: 
  Country: None (occurrence: None)
  Receive Date: 20100510
  Receipt Date: 20100510
  Transmission Date: 20101027
  Serious: Yes (Hospitalization)
  Sender: FDA-Public Use
  Company Number: None

PATIENT
  Sex: Female
  Weight: 103.9 kg

DRUGS (3)
  1. FLUOROURACIL [Suspect]
     Dosage: 1055 MG
     Dates: end: 20100422
  2. CYCLOPHOSPHAMIDE [Suspect]
     Dosage: 1055 MG
     Dates: end: 20100422
  3. ELLENCE [Suspect]
     Dosage: 158 MG
     Dates: end: 20100422

REACTIONS (11)
  - ACUTE RESPIRATORY FAILURE [None]
  - BACTERIAL TEST [None]
  - CHILLS [None]
  - COUGH [None]
  - HYPOXIA [None]
  - LUNG INFILTRATION [None]
  - NEUTROPHIL COUNT DECREASED [None]
  - PNEUMONIA [None]
  - PYREXIA [None]
  - URINARY TRACT INFECTION [None]
  - WHITE BLOOD CELL COUNT DECREASED [None]
